FAERS Safety Report 4704996-X (Version None)
Quarter: 2005Q3

REPORT INFORMATION
  Report Type: 
  Country: None (occurrence: None)
  Receive Date: 20050701
  Receipt Date: 20050622
  Transmission Date: 20060218
  Serious: Yes (Other)
  Sender: FDA-Public Use
  Company Number: US-JNJFOC-20050606319

PATIENT
  Sex: Female

DRUGS (17)
  1. INFLIXIMAB [Suspect]
     Indication: RHEUMATOID ARTHRITIS
     Route: 042
  2. MOBIC [Concomitant]
  3. VICODIN [Concomitant]
  4. VICODIN [Concomitant]
     Dosage: 5/500 MG 2-3 TIMES DAILY
  5. CALTRATE [Concomitant]
  6. B-6 [Concomitant]
  7. MULTI-VITAMIN [Concomitant]
  8. MULTI-VITAMIN [Concomitant]
  9. MULTI-VITAMIN [Concomitant]
  10. MULTI-VITAMIN [Concomitant]
  11. MULTI-VITAMIN [Concomitant]
  12. MULTI-VITAMIN [Concomitant]
  13. MULTI-VITAMIN [Concomitant]
  14. MULTI-VITAMIN [Concomitant]
  15. AVISTA [Concomitant]
  16. SYNTHROID [Concomitant]
  17. GLUCOSAMINE/CHRONDROITIN [Concomitant]

REACTIONS (1)
  - MALIGNANT MELANOMA [None]
